FAERS Safety Report 22395052 (Version 2)
Quarter: 2023Q2

REPORT INFORMATION
  Report Type: Report from Study
  Country: US (occurrence: US)
  Receive Date: 20230601
  Receipt Date: 20230623
  Transmission Date: 20230722
  Serious: Yes (Other)
  Sender: FDA-Public Use
  Company Number: US-JAZZ-2020-US-008352

PATIENT
  Age: 38 Year
  Sex: Male

DRUGS (5)
  1. XYREM [Suspect]
     Active Substance: SODIUM OXYBATE
     Indication: Narcolepsy
     Dosage: 4.5 GRAM, BID
     Route: 048
     Dates: start: 20130826
  2. XYREM [Suspect]
     Active Substance: SODIUM OXYBATE
     Indication: Cataplexy
  3. XYREM [Suspect]
     Active Substance: SODIUM OXYBATE
     Indication: Somnolence
  4. NASACORT [Concomitant]
     Active Substance: TRIAMCINOLONE ACETONIDE
     Indication: Product used for unknown indication
     Dosage: UNK
  5. ECONAZOLE [Concomitant]
     Active Substance: ECONAZOLE
     Indication: Product used for unknown indication
     Dosage: UNK

REACTIONS (4)
  - Urinary retention [Unknown]
  - Product administration interrupted [Unknown]
  - Intentional product use issue [Unknown]
  - Paternal exposure during pregnancy [Unknown]

NARRATIVE: CASE EVENT DATE: 20210110
